FAERS Safety Report 20428847 (Version 1)
Quarter: 2022Q1

REPORT INFORMATION
  Report Type: Spontaneous
  Country: US (occurrence: US)
  Receive Date: 20220204
  Receipt Date: 20220204
  Transmission Date: 20220424
  Serious: No
  Sender: FDA-Public Use
  Company Number: US-ALLERGAN-2202172US

PATIENT
  Sex: Male

DRUGS (2)
  1. VUITY [Suspect]
     Active Substance: PILOCARPINE HYDROCHLORIDE
     Indication: Presbyopia
     Dosage: UNK UNK, SINGLE
     Dates: start: 20220104, end: 20220104
  2. VUITY [Suspect]
     Active Substance: PILOCARPINE HYDROCHLORIDE
     Dosage: UNK UNK, SINGLE
     Dates: start: 20211230, end: 20211230

REACTIONS (4)
  - Discomfort [Recovered/Resolved]
  - Drug ineffective [Unknown]
  - Eye pain [Recovered/Resolved]
  - Headache [Recovered/Resolved]

NARRATIVE: CASE EVENT DATE: 20211230
